FAERS Safety Report 4916460-3 (Version None)
Quarter: 2006Q1

REPORT INFORMATION
  Report Type: 
  Country: None (occurrence: None)
  Receive Date: 20060214
  Receipt Date: 20060130
  Transmission Date: 20060701
  Serious: Yes (Hospitalization)
  Sender: FDA-Public Use
  Company Number: 2006-00187

PATIENT
  Age: 77 Year
  Sex: Female

DRUGS (3)
  1. VELCADE [Suspect]
     Dosage: INTRAVENOUS
     Route: 042
  2. DEXAMETHASONE [Concomitant]
  3. ANTIDEPRESSANTS [Concomitant]

REACTIONS (2)
  - HYPONATRAEMIA [None]
  - INAPPROPRIATE ANTIDIURETIC HORMONE SECRETION [None]
